FAERS Safety Report 20581774 (Version 5)
Quarter: 2022Q3

REPORT INFORMATION
  Report Type: Spontaneous
  Country: JP (occurrence: JP)
  Receive Date: 20220311
  Receipt Date: 20220714
  Transmission Date: 20221027
  Serious: Yes (Death, Other)
  Sender: FDA-Public Use
  Company Number: JP-GSKNCCC-Case-01440204_AE-55684

PATIENT

DRUGS (46)
  1. SOTROVIMAB [Suspect]
     Active Substance: SOTROVIMAB
     Indication: COVID-19
     Dosage: 500 MG/100 ML/30 MIN
     Route: 041
     Dates: start: 20220305, end: 20220305
  2. MEDROL TABLETS [Concomitant]
     Indication: Renal transplant
     Dosage: 0.5 DF, QD, AFTER BREAKFAST
     Dates: end: 20220308
  3. GRACEPTOR CAPSULES [Concomitant]
     Indication: Renal transplant
     Dosage: 1.5 MG, QD, AFTER BREAKFAST
     Dates: end: 20220308
  4. POLAPREZINC [Concomitant]
     Active Substance: POLAPREZINC
     Dosage: 1 DF, BID, AFTER BREAKFAST/VDS
     Dates: end: 20220307
  5. CARBOCYSTEINE [Concomitant]
     Active Substance: CARBOCYSTEINE
     Dosage: 3 DF, TID, AFTER EVERY MEAL
     Dates: end: 20220307
  6. SODIUM FERROUS CITRATE [Concomitant]
     Active Substance: SODIUM FERROUS CITRATE
     Dosage: 1 DF, QD, AFTER BREAKFAST
     Dates: end: 20220307
  7. CP COMBINATION GRANULES [Concomitant]
     Dosage: 1G, QD, AFTER BREAKFAST
     Dates: end: 20220307
  8. BROTIZOLAM [Concomitant]
     Active Substance: BROTIZOLAM
     Dosage: 1 DF, QD, BEFORE BEDTIME
     Dates: end: 20220307
  9. CELLCEPT [Concomitant]
     Active Substance: MYCOPHENOLATE MOFETIL
     Dosage: 1 DF, BID, AFTER BREAKFAST AND DINNER
     Dates: end: 20220307
  10. HERBALS [Concomitant]
     Active Substance: HERBALS
     Dosage: 2.5 G, TID, BEFORE EVERY MEAL
     Dates: end: 20220307
  11. CALONAL [Concomitant]
     Active Substance: ACETAMINOPHEN
     Dosage: 1 DF, TID, AFTER EVERY MEAL
     Dates: end: 20220307
  12. NEUROTROPIN TABLET (SEPARATED CONSITUENT FROM RABBIT SKIN TREATED WITH [Concomitant]
     Dosage: 2 DF, BID, AFTER BREAKFAST AND DINNER
     Dates: end: 20220307
  13. PREGABALIN [Concomitant]
     Active Substance: PREGABALIN
     Dosage: 2 TABLETS(25) AFTER BREAKFAST, 1 TABLETS(75) AFTER DINNER, QD
     Dates: end: 20220307
  14. CLOPIDOGREL BISULFATE [Concomitant]
     Active Substance: CLOPIDOGREL BISULFATE
     Dosage: 75 MG, QD, AFTER BREAKFAST
     Dates: end: 20220307
  15. PARIET TABLET [Concomitant]
     Dosage: 10 MG, QD, AFTER BREAKFAST
     Dates: end: 20220307
  16. AMLODIPINE BESYLATE [Concomitant]
     Active Substance: AMLODIPINE BESYLATE
     Dosage: 2.5 MG, QD, AFTER BREAKFAST
     Dates: end: 20220307
  17. ROSUVASTATIN OD TABLETS [Concomitant]
     Dosage: 2.5 MG, QD, AFTER BREAKFAST, ONE-DOSE PACKAGE
     Dates: end: 20220307
  18. HERBALS [Concomitant]
     Active Substance: HERBALS
     Dosage: 2.5 G, TID, BEFORE EVERY MEAL
     Dates: end: 20220307
  19. OXYGEN [Concomitant]
     Active Substance: OXYGEN
     Dosage: 2 L
     Dates: start: 20220302
  20. OXYGEN [Concomitant]
     Active Substance: OXYGEN
     Dosage: 5 L
     Dates: start: 20220303
  21. OXYGEN [Concomitant]
     Active Substance: OXYGEN
     Dosage: 6 L
  22. OXYGEN [Concomitant]
     Active Substance: OXYGEN
     Dosage: 10 L
  23. SOLITA-T NO.1 [Concomitant]
     Dosage: 500 ML
  24. SOLITA-T NO.1 [Concomitant]
     Dosage: 500 ML
  25. SOLITA-T NO.1 [Concomitant]
     Dosage: UNK
  26. CYANOCOBALAMIN\PYRIDOXINE HYDROCHLORIDE\THIAMINE [Concomitant]
     Active Substance: CYANOCOBALAMIN\PYRIDOXINE HYDROCHLORIDE\THIAMINE
     Dosage: 1 DF
  27. CYANOCOBALAMIN\PYRIDOXINE HYDROCHLORIDE\THIAMINE [Concomitant]
     Active Substance: CYANOCOBALAMIN\PYRIDOXINE HYDROCHLORIDE\THIAMINE
     Dosage: 1 DF
  28. CYANOCOBALAMIN\PYRIDOXINE HYDROCHLORIDE\THIAMINE [Concomitant]
     Active Substance: CYANOCOBALAMIN\PYRIDOXINE HYDROCHLORIDE\THIAMINE
     Dosage: 1 DF
  29. SOLU-MEDROL [Concomitant]
     Active Substance: METHYLPREDNISOLONE SODIUM SUCCINATE
     Dosage: UNK
     Dates: start: 20220308
  30. SOLU-MEDROL [Concomitant]
     Active Substance: METHYLPREDNISOLONE SODIUM SUCCINATE
     Dosage: 36 MG
     Dates: start: 20220308
  31. SODIUM CHLORIDE [Concomitant]
     Active Substance: SODIUM CHLORIDE
     Dosage: UNK
  32. SODIUM CHLORIDE [Concomitant]
     Active Substance: SODIUM CHLORIDE
     Dosage: 20 ML
  33. SODIUM CHLORIDE [Concomitant]
     Active Substance: SODIUM CHLORIDE
     Dosage: 100 ML
  34. SODIUM CHLORIDE [Concomitant]
     Active Substance: SODIUM CHLORIDE
     Dosage: 100 UNK
  35. ISOTONIC SODIUM CHLORIDE SOLUTION SYRINGE [Concomitant]
     Dosage: UNK
  36. KIDMIN INJECTION [Concomitant]
     Dosage: 300 ML
  37. KIDMIN INJECTION [Concomitant]
     Dosage: 300 UNK
  38. ALBUMIN HUMAN [Concomitant]
     Active Substance: ALBUMIN HUMAN
     Dosage: 2.5 G
  39. POPIYODON [Concomitant]
     Dosage: 20 ML
  40. XYLOCAINE POLYAMP INJECTION [Concomitant]
     Dosage: 5 ML
  41. DARBEPOETIN ALFA INJECTION [Concomitant]
     Dosage: 0.5 ML
  42. FUROSEMIDE [Concomitant]
     Active Substance: FUROSEMIDE
     Dosage: 10 MG
  43. FUROSEMIDE [Concomitant]
     Active Substance: FUROSEMIDE
     Dosage: 10 MG
  44. HICALIQ RF INFUSION [Concomitant]
     Dosage: 500 ML
  45. LANSOPRAZOLE [Concomitant]
     Active Substance: LANSOPRAZOLE
     Dosage: 30 MG
  46. DEXTROSE [Concomitant]
     Active Substance: DEXTROSE
     Dosage: 50 ML

REACTIONS (10)
  - Renal impairment [Fatal]
  - Renal failure [Fatal]
  - Cardiac failure [Fatal]
  - Respiratory arrest [Fatal]
  - General physical health deterioration [Fatal]
  - Heart rate decreased [Fatal]
  - Pyrexia [Recovered/Resolved]
  - Dehydration [Unknown]
  - Urine abnormality [Unknown]
  - Product use issue [Unknown]

NARRATIVE: CASE EVENT DATE: 20220307
